FAERS Safety Report 23101191 (Version 1)
Quarter: 2023Q4

REPORT INFORMATION
  Report Type: Spontaneous
  Country: CA (occurrence: CA)
  Receive Date: 20231024
  Receipt Date: 20231024
  Transmission Date: 20240110
  Serious: Yes (Life-Threatening, Hospitalization, Other)
  Sender: FDA-Public Use
  Company Number: CA-ANIPHARMA-2023-CA-003328

PATIENT
  Age: 60 Year
  Sex: Male

DRUGS (6)
  1. CANDESARTAN [Suspect]
     Active Substance: CANDESARTAN
     Indication: Hypertension
     Dosage: 8 MG DAILY
     Route: 048
  2. LITHIUM [Concomitant]
     Active Substance: LITHIUM
     Route: 065
  3. LOXAPINE [Concomitant]
     Active Substance: LOXAPINE
     Route: 065
  4. METFORMIN [Concomitant]
     Active Substance: METFORMIN HYDROCHLORIDE
     Route: 065
  5. PAROXETINE [Concomitant]
     Active Substance: PAROXETINE
     Route: 065
  6. ROSUVASTATIN [Concomitant]
     Active Substance: ROSUVASTATIN
     Route: 065

REACTIONS (2)
  - Intensive care [Recovering/Resolving]
  - Toxicity to various agents [Recovering/Resolving]
